FAERS Safety Report 10458524 (Version 1)
Quarter: 2014Q3

REPORT INFORMATION
  Report Type: Spontaneous
  Country: DK (occurrence: None)
  Receive Date: 20140915
  Receipt Date: 20140915
  Transmission Date: 20150326
  Serious: Yes (Hospitalization)
  Sender: FDA-Public Use
  Company Number: 2014SCAL000093

PATIENT
  Age: 88 Year
  Sex: Female

DRUGS (5)
  1. THIAZIDE [Concomitant]
     Active Substance: UNSPECIFIED INGREDIENT
  2. LEVODOPA [Concomitant]
     Active Substance: LEVODOPA
  3. RIVASTIGMINE TARTRATE. [Suspect]
     Active Substance: RIVASTIGMINE TARTRATE
     Indication: DEMENTIA ALZHEIMER^S TYPE
  4. MIRTAZAPINE (MIRTAZAPINE) [Concomitant]
     Active Substance: MIRTAZAPINE
  5. LOSARTAN [Concomitant]
     Active Substance: LOSARTAN

REACTIONS (4)
  - Atrioventricular block complete [None]
  - Dyspnoea [None]
  - Hyponatraemia [None]
  - Hypocalcaemia [None]
